FAERS Safety Report 9092754 (Version 1)
Quarter: 2013Q1

REPORT INFORMATION
  Report Type: Report from Study
  Country: US (occurrence: US)
  Receive Date: 20130131
  Receipt Date: 20130131
  Transmission Date: 20140127
  Serious: No
  Sender: FDA-Public Use
  Company Number: US-ABBOTT-12P-163-1002838-00

PATIENT
  Age: 47 Year
  Sex: Female

DRUGS (5)
  1. HUMIRA [Suspect]
     Indication: CROHN^S DISEASE
     Dosage: LOADING DOSE
     Dates: start: 20121022
  2. IMURAN [Concomitant]
     Indication: CROHN^S DISEASE
     Dosage: DAILY
  3. ENTOCORT [Concomitant]
     Indication: CROHN^S DISEASE
     Dosage: DAILY
  4. WELCHOL [Concomitant]
     Indication: BLOOD CHOLESTEROL INCREASED
  5. VITAMIN B12 [Concomitant]
     Indication: PRODUCT USED FOR UNKNOWN INDICATION
     Dosage: MONTHLY
     Route: 050

REACTIONS (2)
  - Injection site pain [Recovered/Resolved]
  - Injection site pain [Recovered/Resolved]
